FAERS Safety Report 18365345 (Version 1)
Quarter: 2020Q4

REPORT INFORMATION
  Report Type: Spontaneous
  Country: US (occurrence: US)
  Receive Date: 20201009
  Receipt Date: 20201009
  Transmission Date: 20210114
  Serious: Yes (Hospitalization, Disabling)
  Sender: FDA-Public Use
  Company Number: None

PATIENT
  Age: 58 Year
  Sex: Male
  Weight: 64 kg

DRUGS (6)
  1. PREDNISONE. [Concomitant]
     Active Substance: PREDNISONE
  2. FINASTERIDE. [Concomitant]
     Active Substance: FINASTERIDE
  3. TAMSULOSINE HCL [Concomitant]
     Active Substance: TAMSULOSIN HYDROCHLORIDE
  4. PURE NUTRIENT 950 MULTIVITAMIN/MINERAL FORMULA [Concomitant]
  5. MESALAMINE EXTENDED-RELEASE CAPSULES, USP 0.375G [Suspect]
     Active Substance: MESALAMINE
     Indication: COLITIS ULCERATIVE
     Dosage: ?          QUANTITY:4 CAPSULE(S);?
     Route: 048
     Dates: start: 20200701, end: 20200912
  6. ORTHO MOLECULAR PRODUCTS LIQUID VITAMIN D3 WITH K2 [Concomitant]

REACTIONS (4)
  - Insurance issue [None]
  - Product substitution issue [None]
  - Colitis [None]
  - Suspected product quality issue [None]

NARRATIVE: CASE EVENT DATE: 20200827
